FAERS Safety Report 4416174-2 (Version None)
Quarter: 2004Q2

REPORT INFORMATION
  Report Type: 
  Country: None (occurrence: None)
  Receive Date: 20040623
  Receipt Date: 20040406
  Transmission Date: 20050107
  Serious: No
  Sender: FDA-Public Use
  Company Number: WAES 0402USA01205

PATIENT
  Age: 62 Year
  Sex: Female
  Weight: 97.5234 kg

DRUGS (8)
  1. INVANZ [Suspect]
     Indication: DIABETIC FOOT
     Dosage: 1 GM/DAILY/IV
     Route: 042
     Dates: start: 20040128, end: 20040213
  2. INVANZ [Suspect]
     Indication: OSTEOMYELITIS
     Dosage: 1 GM/DAILY/IV
     Route: 042
     Dates: start: 20040128, end: 20040213
  3. LANTUS [Concomitant]
  4. LASIX (FUROSEDE SODIUM) [Concomitant]
  5. LIPITOR [Concomitant]
  6. DIGOXIN [Concomitant]
  7. INSULIN [Concomitant]
  8. METOPROLOL [Concomitant]

REACTIONS (2)
  - ALANINE AMINOTRANSFERASE INCREASED [None]
  - ASPARTATE AMINOTRANSFERASE INCREASED [None]
